FAERS Safety Report 24660770 (Version 1)
Quarter: 2024Q4

REPORT INFORMATION
  Report Type: Spontaneous
  Country: US (occurrence: US)
  Receive Date: 20241125
  Receipt Date: 20241125
  Transmission Date: 20250115
  Serious: No
  Sender: AVADEL CNS PHARMACEUTICALS, LLC
  Company Number: US-AVADEL CNS PHARMACEUTICALS, LLC-2024AVA02096

PATIENT
  Sex: Female
  Weight: 103.63 kg

DRUGS (6)
  1. LUMRYZ [Suspect]
     Active Substance: SODIUM OXYBATE
     Indication: Narcolepsy
     Dosage: 9 G, ONCE NIGHTLY
     Route: 048
     Dates: start: 202409, end: 2024
  2. LUMRYZ [Suspect]
     Active Substance: SODIUM OXYBATE
     Indication: Narcolepsy
     Dosage: 7.5 G, ONCE NIGHTLY AT BEDTIME
     Route: 048
     Dates: start: 2024
  3. MODAFINIL [Concomitant]
     Active Substance: MODAFINIL
  4. SULFASALAZINE [Concomitant]
     Active Substance: SULFASALAZINE
  5. LEXAPRO [Concomitant]
     Active Substance: ESCITALOPRAM OXALATE
  6. VITAMINS NOS [Concomitant]
     Active Substance: VITAMINS
     Dosage: NULL TABLET

REACTIONS (5)
  - Fatigue [Unknown]
  - Headache [Unknown]
  - Dizziness [Unknown]
  - Depressed mood [Unknown]
  - Unevaluable event [Unknown]

NARRATIVE: CASE EVENT DATE: 20240101
